FAERS Safety Report 18709417 (Version 1)
Quarter: 2021Q1

REPORT INFORMATION
  Report Type: Spontaneous
  Country: CA (occurrence: CA)
  Receive Date: 20210106
  Receipt Date: 20210106
  Transmission Date: 20210419
  Serious: Yes (Other)
  Sender: FDA-Public Use
  Company Number: CA-GE HEALTHCARE LIFE SCIENCES-2020CSU006804

PATIENT

DRUGS (2)
  1. OMNIPAQUE [Suspect]
     Active Substance: IOHEXOL
     Indication: COMPUTERISED TOMOGRAM THORAX
     Dosage: 60 ML, SINGLE
     Route: 042
     Dates: start: 20201227, end: 20201227
  2. OMNIPAQUE [Suspect]
     Active Substance: IOHEXOL
     Indication: SMALL CELL LUNG CANCER

REACTIONS (3)
  - Muscular weakness [Recovered/Resolved]
  - Unresponsive to stimuli [Recovered/Resolved]
  - Dyspnoea [Recovered/Resolved]

NARRATIVE: CASE EVENT DATE: 20201227
